FAERS Safety Report 9743717 (Version 1)
Quarter: 2013Q4

REPORT INFORMATION
  Report Type: Spontaneous
  Country: US (occurrence: US)
  Receive Date: 20131210
  Receipt Date: 20131210
  Transmission Date: 20140711
  Serious: Yes (Other)
  Sender: FDA-Public Use
  Company Number: US-TEVA-381536USA

PATIENT
  Age: 35 Year
  Sex: Female
  Weight: 82.63 kg

DRUGS (1)
  1. PARAGARD 380A [Suspect]
     Indication: CONTRACEPTION
     Route: 015
     Dates: start: 201206

REACTIONS (5)
  - Device dislocation [Not Recovered/Not Resolved]
  - Pregnancy with contraceptive device [Unknown]
  - Drug ineffective [Unknown]
  - Menorrhagia [Not Recovered/Not Resolved]
  - Abdominal pain [Not Recovered/Not Resolved]
